FAERS Safety Report 23547616 (Version 2)
Quarter: 2024Q3

REPORT INFORMATION
  Report Type: Report from Study
  Country: US (occurrence: US)
  Receive Date: 20240221
  Receipt Date: 20240829
  Transmission Date: 20241017
  Serious: Yes (Other)
  Sender: TAKEDA
  Company Number: US-TAKEDA-2023TUS086704

PATIENT
  Sex: Female

DRUGS (1)
  1. VELAGLUCERASE ALFA [Suspect]
     Active Substance: VELAGLUCERASE ALFA
     Indication: Product used for unknown indication
     Dosage: UNK
     Route: 042
     Dates: start: 20100511

REACTIONS (4)
  - Cataract [Recovered/Resolved]
  - COVID-19 [Recovered/Resolved]
  - Product dose omission issue [Recovered/Resolved]
  - Arthralgia [Recovered/Resolved]
